FAERS Safety Report 16032686 (Version 3)
Quarter: 2023Q1

REPORT INFORMATION
  Report Type: Report from Study
  Country: US (occurrence: US)
  Receive Date: 20190305
  Receipt Date: 20230110
  Transmission Date: 20230418
  Serious: Yes (Other)
  Sender: FDA-Public Use
  Company Number: US-SHIRE-US201907227

PATIENT
  Age: 53 Year
  Sex: Female

DRUGS (5)
  1. ECALLANTIDE [Suspect]
     Active Substance: ECALLANTIDE
     Indication: Hereditary angioedema
     Dosage: 30 MILLIGRAM
     Route: 058
  2. ECALLANTIDE [Suspect]
     Active Substance: ECALLANTIDE
     Dosage: 30 MILLIGRAM, QD
     Route: 058
  3. TAKHZYRO [Suspect]
     Active Substance: LANADELUMAB-FLYO
     Indication: Immune system disorder
     Dosage: 300 MILLIGRAM, Q2WEEKS
     Route: 058
     Dates: start: 20190202
  4. TAKHZYRO [Suspect]
     Active Substance: LANADELUMAB-FLYO
     Dosage: 300 MILLIGRAM, Q2WEEKS
     Route: 058
     Dates: start: 20190220
  5. TAKHZYRO [Suspect]
     Active Substance: LANADELUMAB-FLYO
     Dosage: 300 MILLILITER, Q2WEEKS
     Route: 058
     Dates: start: 20190222

REACTIONS (2)
  - Hereditary angioedema [Recovered/Resolved]
  - Drug ineffective [Unknown]

NARRATIVE: CASE EVENT DATE: 20190222
